FAERS Safety Report 6347740-5 (Version None)
Quarter: 2009Q3

REPORT INFORMATION
  Report Type: 
  Country: None (occurrence: None)
  Receive Date: 20090910
  Receipt Date: 20090901
  Transmission Date: 20100115
  Serious: Yes (Hospitalization)
  Sender: FDA-Public Use
  Company Number: A0769365A

PATIENT
  Age: 68 Year
  Sex: Female
  Weight: 83.6 kg

DRUGS (12)
  1. AVANDIA [Suspect]
     Indication: TYPE 2 DIABETES MELLITUS
     Dosage: 4MG PER DAY
     Route: 048
     Dates: start: 20000101, end: 20070401
  2. METFORMIN HCL [Concomitant]
  3. GLIPIZIDE [Concomitant]
  4. PREVACID [Concomitant]
  5. REGLAN [Concomitant]
  6. NORPRAMIN [Concomitant]
  7. PHENERGAN [Concomitant]
  8. FERROUS SULFATE TAB [Concomitant]
  9. CHLORPHENIRAMINE MALEATE [Concomitant]
  10. MIRAPEX [Concomitant]
  11. REGULAR INSULIN [Concomitant]
  12. DARVOCET [Concomitant]

REACTIONS (11)
  - ANAEMIA [None]
  - CARDIAC DISORDER [None]
  - CARDIAC FAILURE CONGESTIVE [None]
  - CONFUSIONAL STATE [None]
  - DELIRIUM [None]
  - IRON DEFICIENCY ANAEMIA [None]
  - MITRAL VALVE INCOMPETENCE [None]
  - PULMONARY HYPERTENSION [None]
  - SINUS TACHYCARDIA [None]
  - TRICUSPID VALVE INCOMPETENCE [None]
  - VIRAL UPPER RESPIRATORY TRACT INFECTION [None]
